FAERS Safety Report 14587535 (Version 2)
Quarter: 2018Q2

REPORT INFORMATION
  Report Type: Spontaneous
  Country: JP (occurrence: JP)
  Receive Date: 20180301
  Receipt Date: 20180425
  Transmission Date: 20180711
  Serious: Yes (Other)
  Sender: FDA-Public Use
  Company Number: JP-REGENERON PHARMACEUTICALS, INC.-2018-15958

PATIENT

DRUGS (6)
  1. EYLEA [Suspect]
     Active Substance: AFLIBERCEPT
     Dosage: 0.05 MG, ONCE, LEFT EYE
     Route: 031
     Dates: start: 20180222, end: 20180222
  2. EYLEA [Suspect]
     Active Substance: AFLIBERCEPT
     Indication: NEOVASCULAR AGE-RELATED MACULAR DEGENERATION
     Dosage: 0.05 MG, ONCE, LEFT EYE
     Route: 031
     Dates: start: 20171226, end: 20171226
  3. EYLEA [Suspect]
     Active Substance: AFLIBERCEPT
     Dosage: 0.05 MG, ONCE, LEFT EYE
     Route: 031
     Dates: start: 20180125, end: 20180125
  4. EYLEA [Suspect]
     Active Substance: AFLIBERCEPT
     Dosage: 0.05 MG, ONCE, RIGHT EYE
     Route: 031
     Dates: start: 20180308, end: 20180308
  5. EYLEA [Suspect]
     Active Substance: AFLIBERCEPT
     Dosage: 0.05 MG, ONCE, RIGHT EYE
     Route: 031
     Dates: start: 20180208, end: 20180208
  6. EYLEA [Suspect]
     Active Substance: AFLIBERCEPT
     Dosage: 0.05 MG, ONCE, RIGHT EYE
     Route: 031
     Dates: start: 20180104, end: 20180104

REACTIONS (2)
  - Retinal vein thrombosis [Not Recovered/Not Resolved]
  - Retinal vein occlusion [Not Recovered/Not Resolved]

NARRATIVE: CASE EVENT DATE: 20180209
